FAERS Safety Report 11501257 (Version 2)
Quarter: 2015Q4

REPORT INFORMATION
  Report Type: Spontaneous
  Country: US (occurrence: US)
  Receive Date: 20150914
  Receipt Date: 20151116
  Transmission Date: 20160304
  Serious: Yes (Life-Threatening, Hospitalization)
  Sender: FDA-Public Use
  Company Number: US-JNJFOC-20150908167

PATIENT
  Age: 71 Year
  Sex: Female
  Weight: 64 kg

DRUGS (3)
  1. SIMPONI ARIA [Suspect]
     Active Substance: GOLIMUMAB
     Indication: RHEUMATOID ARTHRITIS
     Route: 042
     Dates: start: 20150626
  2. SIMPONI ARIA [Suspect]
     Active Substance: GOLIMUMAB
     Indication: RHEUMATOID ARTHRITIS
     Dosage: 0,4 WEEKS
     Route: 042
     Dates: start: 20150529
  3. METHOTREXATE [Concomitant]
     Active Substance: METHOTREXATE
     Route: 065

REACTIONS (6)
  - Acute respiratory distress syndrome [Recovered/Resolved]
  - Pneumonia [Recovered/Resolved]
  - Cystitis [Recovered/Resolved]
  - Sepsis [Recovered/Resolved]
  - Coma [Recovered/Resolved]
  - Interstitial lung disease [Unknown]

NARRATIVE: CASE EVENT DATE: 20150626
